FAERS Safety Report 24131886 (Version 1)
Quarter: 2024Q3

REPORT INFORMATION
  Report Type: Spontaneous
  Country: US (occurrence: None)
  Receive Date: 20240724
  Receipt Date: 20240724
  Transmission Date: 20241016
  Serious: Yes (Hospitalization)
  Sender: Public
  Company Number: None

PATIENT
  Age: 46 Year
  Sex: Male

DRUGS (1)
  1. ELFABRIO [Suspect]
     Active Substance: PEGUNIGALSIDASE ALFA-IWXJ
     Indication: Fabry^s disease
     Dosage: 80MG EVERY 2 WEEKS INTRAVENOUSLY ?
     Route: 042
     Dates: start: 202403

REACTIONS (3)
  - Localised infection [None]
  - Weight [None]
  - Staphylococcal infection [None]

NARRATIVE: CASE EVENT DATE: 20240713
